FAERS Safety Report 19464166 (Version 2)
Quarter: 2021Q2

REPORT INFORMATION
  Report Type: Spontaneous
  Country: US (occurrence: US)
  Receive Date: 20210625
  Receipt Date: 20210626
  Transmission Date: 20210717
  Serious: Yes (Other)
  Sender: FDA-Public Use
  Company Number: US-ENDO PHARMACEUTICALS INC-2021-003140

PATIENT
  Age: 53 Year
  Sex: Male

DRUGS (4)
  1. RANITIDINE. [Suspect]
     Active Substance: RANITIDINE
     Indication: MASTOCYTOSIS
     Dosage: 150 MG, DAILY
     Route: 065
     Dates: start: 200801, end: 201901
  2. ZANTAC [Suspect]
     Active Substance: RANITIDINE HYDROCHLORIDE
     Indication: MASTOCYTOSIS
     Dosage: 150 MG, DAILY
     Route: 065
     Dates: start: 200801, end: 201501
  3. ZANTAC [Suspect]
     Active Substance: RANITIDINE HYDROCHLORIDE
     Indication: MASTOCYTOSIS
     Dosage: 150 MG, DAILY
     Route: 065
     Dates: start: 200801, end: 201501
  4. RANITIDINE HYDROCHLORIDE. [Suspect]
     Active Substance: RANITIDINE HYDROCHLORIDE
     Indication: MASTOCYTOSIS
     Dosage: 150 MG, DAILY
     Route: 065
     Dates: start: 200801, end: 201901

REACTIONS (2)
  - Prostate cancer [Recovering/Resolving]
  - Bladder cancer [Recovering/Resolving]

NARRATIVE: CASE EVENT DATE: 20100101
